FAERS Safety Report 20973351 (Version 1)
Quarter: 2022Q2

REPORT INFORMATION
  Report Type: Other
  Country: US (occurrence: None)
  Receive Date: 20220617
  Receipt Date: 20220617
  Transmission Date: 20220721
  Serious: No
  Sender: FDA-Public Use
  Company Number: US-ROCHE-2597880

PATIENT
  Age: 67 Year
  Sex: Female
  Weight: 93.070 kg

DRUGS (2)
  1. OCREVUS [Suspect]
     Active Substance: OCRELIZUMAB
     Indication: Primary progressive multiple sclerosis
     Dosage: DATE OF TREATMENTS: 01/MAR/2019, 04/APR/2019, 24/OCT/2019, 30/APR/2020, 05/NOV/2020, 06/MAY/2021
     Route: 042
     Dates: start: 2019
  2. AMPYRA [Concomitant]
     Active Substance: DALFAMPRIDINE
     Indication: Multiple sclerosis
     Route: 048

REACTIONS (3)
  - Vision blurred [Recovered/Resolved]
  - Hypersomnia [Not Recovered/Not Resolved]
  - COVID-19 [Recovered/Resolved]

NARRATIVE: CASE EVENT DATE: 20200430
